FAERS Safety Report 9914341 (Version 1)
Quarter: 2014Q1

REPORT INFORMATION
  Report Type: Spontaneous
  Country: JP (occurrence: None)
  Receive Date: 20140218
  Receipt Date: 20140218
  Transmission Date: 20141002
  Serious: Yes (Other)
  Sender: FDA-Public Use
  Company Number: 7269347

PATIENT
  Age: 30 Year
  Sex: Female

DRUGS (1)
  1. LEVOTHYROXINE [Suspect]
     Indication: HYPOTHYROIDISM
     Dosage: AT PRE GESTATION

REACTIONS (4)
  - Exophthalmos [None]
  - Periorbital oedema [None]
  - Live birth [None]
  - Maternal exposure during pregnancy [None]
